FAERS Safety Report 25034511 (Version 1)
Quarter: 2025Q1

REPORT INFORMATION
  Report Type: Spontaneous
  Country: ES (occurrence: ES)
  Receive Date: 20250304
  Receipt Date: 20250304
  Transmission Date: 20250409
  Serious: Yes (Life-Threatening)
  Sender: NOVARTIS
  Company Number: None

PATIENT
  Age: 82 Year
  Sex: Female

DRUGS (8)
  1. HYDROCHLOROTHIAZIDE\VALSARTAN [Suspect]
     Active Substance: HYDROCHLOROTHIAZIDE\VALSARTAN
     Indication: Hypertension
     Route: 048
     Dates: start: 20220217
  2. FUROSEMIDE XANTINOL\TRIAMTERENE [Suspect]
     Active Substance: FUROSEMIDE XANTINOL\TRIAMTERENE
     Indication: Hypertension
     Route: 048
     Dates: start: 20200723
  3. RIVOTRIL [Suspect]
     Active Substance: CLONAZEPAM
     Indication: Persistent depressive disorder
     Route: 048
     Dates: start: 20240208
  4. COSOPT [Concomitant]
     Active Substance: DORZOLAMIDE HYDROCHLORIDE\TIMOLOL MALEATE
     Indication: Cataract
     Route: 047
     Dates: start: 20200625
  5. LEVOTHYROXINE SODIUM [Concomitant]
     Active Substance: LEVOTHYROXINE SODIUM
     Indication: Hypothyroidism
     Route: 048
     Dates: start: 20211130
  6. OMEPRAZOLE [Concomitant]
     Active Substance: OMEPRAZOLE
     Indication: Spinal osteoarthritis
     Route: 048
     Dates: start: 20140819
  7. Atorvastatina stadagen [Concomitant]
     Indication: Hyperlipidaemia
     Route: 048
     Dates: start: 20200416
  8. CARBAMAZEPINE [Concomitant]
     Active Substance: CARBAMAZEPINE
     Indication: Spinal osteoarthritis
     Route: 048
     Dates: start: 20220602

REACTIONS (2)
  - Hyponatraemia [Not Recovered/Not Resolved]
  - Inappropriate antidiuretic hormone secretion [Not Recovered/Not Resolved]

NARRATIVE: CASE EVENT DATE: 20241001
